FAERS Safety Report 8338530-2 (Version None)
Quarter: 2012Q2

REPORT INFORMATION
  Report Type: 
  Country: None (occurrence: None)
  Receive Date: 20120504
  Receipt Date: 20120425
  Transmission Date: 20120825
  Serious: Yes (Other)
  Sender: FDA-Public Use
  Company Number: CA-BAXTER-2011BH040414

PATIENT
  Age: 59 Year
  Sex: Male

DRUGS (1)
  1. GAMMAGARD LIQUID [Suspect]
     Route: 065
     Dates: start: 20110307, end: 20110307

REACTIONS (3)
  - URTICARIA [None]
  - RASH [None]
  - FLUSHING [None]
